FAERS Safety Report 26141308 (Version 2)
Quarter: 2025Q4

REPORT INFORMATION
  Report Type: Spontaneous
  Country: US (occurrence: US)
  Receive Date: 20251210
  Receipt Date: 20251216
  Transmission Date: 20260117
  Serious: No
  Sender: VERTEX
  Company Number: US-VERTEX PHARMACEUTICALS-2025-020969

PATIENT
  Sex: Male

DRUGS (1)
  1. ALYFTREK [Suspect]
     Active Substance: DEUTIVACAFTOR\TEZACAFTOR\VANZACAFTOR
     Indication: Cystic fibrosis
     Dosage: 0.5 TABLET (1/2 TABLET) (4MG VANZACAFTOR/ 20MG TEZACAFTOR/ 50MG DEUTIVACAFTOR), QD (ONCE DAILY)
     Route: 061

REACTIONS (1)
  - Enzyme level increased [Unknown]
